FAERS Safety Report 22002935 (Version 1)
Quarter: 2023Q1

REPORT INFORMATION
  Report Type: Spontaneous
  Country: None (occurrence: IN)
  Receive Date: 20230217
  Receipt Date: 20230217
  Transmission Date: 20230417
  Serious: Yes (Death, Life-Threatening, Hospitalization, Other)
  Sender: FDA-Public Use
  Company Number: IN-SUN PHARMACEUTICAL INDUSTRIES LTD-2023R1-377760

PATIENT
  Sex: Male

DRUGS (2)
  1. AMPHOTERICIN B [Suspect]
     Active Substance: AMPHOTERICIN B
     Indication: Product used for unknown indication
     Dosage: UNK
     Route: 065
  2. ANIDULAFUNGIN [Suspect]
     Active Substance: ANIDULAFUNGIN
     Indication: Product used for unknown indication
     Dosage: 3 MILLIGRAM/KILOGRAM
     Route: 065

REACTIONS (5)
  - Acute on chronic liver failure [Unknown]
  - Coagulopathy [Unknown]
  - Renal failure [Unknown]
  - Cerebral circulatory failure [Fatal]
  - Circulatory collapse [Fatal]
